FAERS Safety Report 8832925 (Version 1)
Quarter: 2012Q4

REPORT INFORMATION
  Report Type: 
  Country: GB (occurrence: GB)
  Receive Date: 20121010
  Receipt Date: 20121010
  Transmission Date: 20130627
  Serious: Yes (Other)
  Sender: FDA-Public Use
  Company Number: PHHY2012GB085535

PATIENT
  Age: 77 Year
  Sex: Male
  Weight: 80 kg

DRUGS (7)
  1. PRAVASTATIN SODIUM [Suspect]
     Dosage: 40 mg, daily
     Route: 048
     Dates: start: 2012, end: 2012
  2. PRAVASTATIN SODIUM [Suspect]
     Dosage: 10 mg, at night
     Route: 048
     Dates: start: 20120807, end: 20120822
  3. RABEPRAZOLE SODIUM [Concomitant]
     Indication: GASTROOESOPHAGEAL REFLUX DISEASE
     Dosage: 1 DF, in the morning
     Route: 048
  4. OMEGA 3 FISH OIL [Concomitant]
     Dosage: 1 DF, QD
     Route: 048
  5. VENTOLIN [Concomitant]
     Indication: ASTHMA
  6. LINOLEIC ACID [Concomitant]
     Dosage: 1 DF, QD
     Route: 048
  7. OLEIC ACID [Concomitant]
     Dosage: 1 DF, QD
     Route: 048

REACTIONS (4)
  - Confusional state [Recovered/Resolved]
  - Amnesia [Recovered/Resolved]
  - Dizziness [Recovered/Resolved]
  - Headache [Recovered/Resolved]
